FAERS Safety Report 10220256 (Version 1)
Quarter: 2014Q2

REPORT INFORMATION
  Report Type: Spontaneous
  Country: US (occurrence: US)
  Receive Date: 20140606
  Receipt Date: 20140606
  Transmission Date: 20141212
  Serious: Yes (Other)
  Sender: FDA-Public Use
  Company Number: US-AMGEN INC.-USASP2014040852

PATIENT
  Age: 75 Year
  Sex: Female

DRUGS (6)
  1. PROLIA [Suspect]
     Indication: PRODUCT USED FOR UNKNOWN INDICATION
     Dosage: UNK
     Route: 065
  2. CALTRATE WITH VITAMIN D [Concomitant]
     Dosage: AT NIGHT
     Route: 065
  3. GLUCOSAMINE + CHONDROITIN          /01430901/ [Concomitant]
     Route: 065
  4. PROBIOTIC                          /06395501/ [Concomitant]
     Route: 065
  5. CENTRUM SILVER                     /02363801/ [Concomitant]
     Dosage: IN THE MORNING
     Route: 065
  6. BIOTIN                             /07916101/ [Concomitant]
     Dosage: AT DINNER
     Route: 065

REACTIONS (16)
  - Cervical spinal stenosis [Unknown]
  - Hypertension [Unknown]
  - Arthropathy [Unknown]
  - Intervertebral disc degeneration [Unknown]
  - Asthma [Unknown]
  - Dyspnoea [Unknown]
  - Hypersensitivity [Unknown]
  - Tooth fracture [Unknown]
  - Bone disorder [Unknown]
  - Hypotension [Unknown]
  - Headache [Unknown]
  - Somnolence [Unknown]
  - Pain [Unknown]
  - Blood cholesterol abnormal [Unknown]
  - Bone density abnormal [Unknown]
  - Vitamin D decreased [Unknown]
